FAERS Safety Report 11382965 (Version 2)
Quarter: 2015Q3

REPORT INFORMATION
  Report Type: Spontaneous
  Country: US (occurrence: US)
  Receive Date: 20150814
  Receipt Date: 20150821
  Transmission Date: 20151125
  Serious: No
  Sender: FDA-Public Use
  Company Number: US-PFIZER INC-2015268400

PATIENT
  Age: 58 Year
  Sex: Female
  Weight: 79 kg

DRUGS (16)
  1. LYRICA [Suspect]
     Active Substance: PREGABALIN
     Dosage: TOOK IT LIKE FOR TWO WEEKS EVERY THIRD DAY
     Route: 048
     Dates: start: 2015, end: 2015
  2. OXYCODONE [Concomitant]
     Active Substance: OXYCODONE
     Indication: PAIN
     Dosage: 10 MG, 3 TO 4 TIMES A DAY
  3. LYRICA [Suspect]
     Active Substance: PREGABALIN
     Dosage: (1 TO 2 A DAY )
     Route: 048
     Dates: start: 2015, end: 2015
  4. METHOTREXATE [Concomitant]
     Active Substance: METHOTREXATE
     Dosage: 2.5 MG, 6 TABLETS A WEEK
  5. LYRICA [Suspect]
     Active Substance: PREGABALIN
     Indication: TOOTHACHE
     Dosage: 75 MG, 2X/DAY (ONE IN MORNING AND ONE AT NIGHT)
     Route: 048
     Dates: start: 2015, end: 2015
  6. LYRICA [Suspect]
     Active Substance: PREGABALIN
     Dosage: 150 MG, DAILY
     Route: 048
     Dates: start: 2015, end: 2015
  7. METHADONE [Concomitant]
     Active Substance: METHADONE HYDROCHLORIDE
     Indication: PAIN
     Dosage: 20 MG, DAILY
  8. PREDNISONE. [Concomitant]
     Active Substance: PREDNISONE
     Indication: DERMATOMYOSITIS
     Dosage: 5 MG, DAILY
  9. FOLIC ACID. [Concomitant]
     Active Substance: FOLIC ACID
     Indication: BLOOD FOLATE DECREASED
     Dosage: 1 MG, DAILY
  10. LYRICA [Suspect]
     Active Substance: PREGABALIN
     Indication: PAIN
     Dosage: 75 MG, 1X/DAY (FOR 4 DAYS )
     Route: 048
     Dates: start: 201504, end: 2015
  11. LISINOPRIL. [Concomitant]
     Active Substance: LISINOPRIL
     Indication: BLOOD PRESSURE ABNORMAL
     Dosage: 20 MG, 1X/DAY
  12. LYRICA [Suspect]
     Active Substance: PREGABALIN
     Dosage: 1 IN MORNING AND 2 AT NIGHT
     Route: 048
     Dates: start: 2015, end: 2015
  13. LYRICA [Suspect]
     Active Substance: PREGABALIN
     Dosage: TWO A DAY
     Route: 048
     Dates: start: 2015, end: 2015
  14. LYRICA [Suspect]
     Active Substance: PREGABALIN
     Dosage: ONE DAILY
     Route: 048
     Dates: start: 2015, end: 2015
  15. LYRICA [Suspect]
     Active Substance: PREGABALIN
     Dosage: 2 AT NIGHT
     Route: 048
     Dates: start: 2015, end: 2015
  16. LYRICA [Suspect]
     Active Substance: PREGABALIN
     Dosage: EVERY 3RD DAY
     Route: 048
     Dates: start: 2015, end: 2015

REACTIONS (11)
  - Muscle spasms [Not Recovered/Not Resolved]
  - Myalgia [Unknown]
  - Activities of daily living impaired [Unknown]
  - Drug ineffective for unapproved indication [Unknown]
  - Renal disorder [Unknown]
  - Myositis [Unknown]
  - Fatigue [Unknown]
  - Feeling abnormal [Unknown]
  - Somnolence [Not Recovered/Not Resolved]
  - Abdominal discomfort [Unknown]
  - Condition aggravated [Unknown]

NARRATIVE: CASE EVENT DATE: 2015
